FAERS Safety Report 18644150 (Version 1)
Quarter: 2020Q4

REPORT INFORMATION
  Report Type: Spontaneous
  Country: FR (occurrence: FR)
  Receive Date: 20201221
  Receipt Date: 20201221
  Transmission Date: 20210114
  Serious: Yes (Other)
  Sender: FDA-Public Use
  Company Number: FR-009507513-2012FRA006286

PATIENT
  Age: 50 Year
  Sex: Female

DRUGS (1)
  1. DIPROSONE [Suspect]
     Active Substance: BETAMETHASONE DIPROPIONATE
     Indication: MEDICATION ERROR
     Dosage: 1 GTT DROPS (1/12 MILLILITRE), ONCE (1 TOTAL)
     Route: 047
     Dates: start: 20201128

REACTIONS (4)
  - Medication error [Recovered/Resolved]
  - Corneal disorder [Recovering/Resolving]
  - Eye irritation [Recovered/Resolved]
  - Wrong product administered [Recovered/Resolved]

NARRATIVE: CASE EVENT DATE: 20201128
